FAERS Safety Report 23309497 (Version 2)
Quarter: 2023Q4

REPORT INFORMATION
  Report Type: Spontaneous
  Country: US (occurrence: US)
  Receive Date: 20231218
  Receipt Date: 20231219
  Transmission Date: 20240109
  Serious: No
  Sender: FDA-Public Use
  Company Number: US-PFIZER INC-202300430391

PATIENT
  Age: 84 Year
  Sex: Male
  Weight: 95.25 kg

DRUGS (1)
  1. VYNDAMAX [Suspect]
     Active Substance: TAFAMIDIS
     Indication: Amyloidosis
     Dosage: ONE PILL DAY TAKE WITH WATER OR DIET SODA

REACTIONS (3)
  - Hypoaesthesia [Unknown]
  - Musculoskeletal stiffness [Unknown]
  - Carpal tunnel syndrome [Unknown]
